FAERS Safety Report 16959297 (Version 3)
Quarter: 2019Q4

REPORT INFORMATION
  Report Type: Report from Study
  Country: CO (occurrence: CO)
  Receive Date: 20191024
  Receipt Date: 20191108
  Transmission Date: 20200122
  Serious: Yes (Hospitalization, Other)
  Sender: FDA-Public Use
  Company Number: CO-AMGEN-COLSL2019176823

PATIENT
  Age: 59 Year
  Sex: Female

DRUGS (2)
  1. KYPROLIS [Suspect]
     Active Substance: CARFILZOMIB
     Indication: PLASMA CELL MYELOMA
     Dosage: 45 MILLIGRAM OTHER
     Route: 042
     Dates: start: 20190718, end: 20191031
  2. KYPROLIS [Suspect]
     Active Substance: CARFILZOMIB
     Dosage: 45 MILLIGRAM, ON DAYS 1, 8 AND 15
     Route: 042
     Dates: start: 20191101

REACTIONS (3)
  - Decreased immune responsiveness [Recovered/Resolved]
  - Off label use [Unknown]
  - Influenza [Not Recovered/Not Resolved]

NARRATIVE: CASE EVENT DATE: 20191018
